FAERS Safety Report 21398949 (Version 4)
Quarter: 2022Q4

REPORT INFORMATION
  Report Type: Report from Study
  Country: US (occurrence: US)
  Receive Date: 20221001
  Receipt Date: 20221111
  Transmission Date: 20230113
  Serious: Yes (Hospitalization, Other)
  Sender: FDA-Public Use
  Company Number: NVSC2022US222220

PATIENT
  Sex: Male

DRUGS (2)
  1. MEKINIST [Suspect]
     Active Substance: TRAMETINIB DIMETHYL SULFOXIDE
     Indication: Lung neoplasm malignant
     Dosage: 2 MG, QD
     Route: 048
     Dates: start: 20220815
  2. TAFINLAR [Suspect]
     Active Substance: DABRAFENIB MESYLATE
     Indication: Lung neoplasm malignant
     Dosage: 150 MG, BID
     Route: 048
     Dates: start: 20220915

REACTIONS (14)
  - Pleural effusion [Unknown]
  - Cardiac failure [Unknown]
  - Tremor [Unknown]
  - Joint swelling [Unknown]
  - Spinal column injury [Unknown]
  - Back injury [Unknown]
  - Fall [Unknown]
  - Back pain [Unknown]
  - Skin abrasion [Unknown]
  - Fungal skin infection [Unknown]
  - Peripheral swelling [Unknown]
  - Concomitant disease aggravated [Unknown]
  - Blood sodium decreased [Unknown]
  - Gait disturbance [Unknown]
